FAERS Safety Report 7820775-9 (Version None)
Quarter: 2011Q4

REPORT INFORMATION
  Report Type: 
  Country: None (occurrence: None)
  Receive Date: 20111018
  Receipt Date: 20111003
  Transmission Date: 20120403
  Serious: Yes (Hospitalization, Other)
  Sender: FDA-Public Use
  Company Number: US-BRISTOL-MYERS SQUIBB COMPANY-16165540

PATIENT
  Age: 67 Year
  Sex: Female

DRUGS (9)
  1. TRIAMCINOLONE ACETONIDE [Suspect]
  2. ALBUTEROL SULFATE [Concomitant]
     Indication: LUNG DISORDER
  3. TRIAMCINOLONE ACETONIDE [Suspect]
     Route: 061
     Dates: start: 20030301
  4. LEVAQUIN [Suspect]
     Indication: LUNG INFECTION
     Dosage: 1DF:500-750MG ALSO TAKEN ON 13MAY05,19DEC05,06FEB06,24JUL06,13NOV06,16JUL07,07OCT07,15OCT07.
     Route: 048
     Dates: start: 20050302
  5. COMBIVENT [Concomitant]
     Indication: LUNG DISORDER
  6. PREDNISOLONE [Suspect]
     Indication: INFECTION
     Dosage: 27NOV-03DEC02. 5MG 28MAR03
     Route: 048
     Dates: start: 20021127
  7. METHYLPREDNISOLONE [Suspect]
     Dosage: TABLET
     Route: 048
     Dates: start: 20060501
  8. ADVAIR DISKUS 100/50 [Suspect]
     Dosage: 1DF:100/50UG.
     Route: 055
     Dates: start: 20070703, end: 20070824
  9. FLUTICASONE PROPIONATE [Suspect]
     Route: 045
     Dates: start: 20060801

REACTIONS (4)
  - ROTATOR CUFF SYNDROME [None]
  - MUSCLE RUPTURE [None]
  - ANXIETY [None]
  - TENDONITIS [None]
